FAERS Safety Report 15542655 (Version 1)
Quarter: 2018Q4

REPORT INFORMATION
  Report Type: Spontaneous
  Country: US (occurrence: US)
  Receive Date: 20181023
  Receipt Date: 20181023
  Transmission Date: 20190205
  Serious: No
  Sender: FDA-Public Use
  Company Number: US-ABBVIE-18S-163-2363586-00

PATIENT
  Age: 47 Year
  Sex: Female

DRUGS (1)
  1. LUPRON [Suspect]
     Active Substance: LEUPROLIDE ACETATE
     Indication: PRODUCT USED FOR UNKNOWN INDICATION
     Route: 050

REACTIONS (9)
  - Feeling hot [Unknown]
  - Dysmenorrhoea [Unknown]
  - Abdominal distension [Not Recovered/Not Resolved]
  - Temperature regulation disorder [Unknown]
  - Menorrhagia [Recovered/Resolved]
  - Diarrhoea [Unknown]
  - Constipation [Unknown]
  - Muscle spasms [Unknown]
  - Night sweats [Unknown]

NARRATIVE: CASE EVENT DATE: 2018
